FAERS Safety Report 21571063 (Version 1)
Quarter: 2022Q4

REPORT INFORMATION
  Report Type: Spontaneous
  Country: JP (occurrence: JP)
  Receive Date: 20221109
  Receipt Date: 20221109
  Transmission Date: 20230113
  Serious: Yes (Other)
  Sender: FDA-Public Use
  Company Number: JP-MYLANLABS-2022M1122106

PATIENT
  Age: 52 Year
  Sex: Male

DRUGS (9)
  1. CYCLOSPORINE [Interacting]
     Active Substance: CYCLOSPORINE
     Indication: Immunosuppressant drug therapy
     Dosage: ADMINISTERED 60 TO 90 NG/ML.
     Route: 065
  2. CYCLOSPORINE [Interacting]
     Active Substance: CYCLOSPORINE
     Dosage: 120 MILLIGRAM, QD
     Route: 048
  3. MYCOPHENOLATE MOFETIL [Interacting]
     Active Substance: MYCOPHENOLATE MOFETIL
     Indication: Immunosuppressant drug therapy
     Dosage: 1000 MILLIGRAM, QD
     Route: 048
  4. ZOLEDRONIC ACID [Suspect]
     Active Substance: ZOLEDRONIC ACID
     Indication: Squamous cell carcinoma of the hypopharynx
     Dosage: UNK
     Route: 065
  5. CISPLATIN [Suspect]
     Active Substance: CISPLATIN
     Indication: Squamous cell carcinoma of the hypopharynx
     Dosage: 80 MILLIGRAM/SQ. METER, CYCLE, ADMINISTERED ON DAY 1. AS A PART OF EXTREME REGIMEN.
     Route: 065
  6. FLUOROURACIL [Suspect]
     Active Substance: FLUOROURACIL
     Indication: Squamous cell carcinoma of the hypopharynx
     Dosage: 800 MILLIGRAM/SQ. METER, CYCLE, ADMINISTERED ON DAYS 1 TO 4. AS A PART OF EXTREME REGIMEN.
     Route: 065
  7. CETUXIMAB [Suspect]
     Active Substance: CETUXIMAB
     Indication: Squamous cell carcinoma of the hypopharynx
     Dosage: 400 MILLIGRAM/SQ. METER, CYCLE, ADMINISTERED ON DAYS 1, 8, AND 15. AS A PART OF EXTREME REGIMEN.
     Route: 065
  8. CETUXIMAB [Suspect]
     Active Substance: CETUXIMAB
     Dosage: 250 MILLIGRAM/SQ. METER, QW, AS A PART OF EXTREME REGIMEN.
     Route: 065
  9. NIVOLUMAB [Interacting]
     Active Substance: NIVOLUMAB
     Indication: Squamous cell carcinoma of the hypopharynx
     Dosage: 240 MILLIGRAM, BIWEEKLY
     Route: 065

REACTIONS (2)
  - Drug interaction [Unknown]
  - Drug ineffective [Unknown]
